FAERS Safety Report 14350058 (Version 1)
Quarter: 2018Q1

REPORT INFORMATION
  Report Type: Spontaneous
  Country: US (occurrence: US)
  Receive Date: 20180103
  Receipt Date: 20180103
  Transmission Date: 20180509
  Serious: Yes (Other)
  Sender: FDA-Public Use
  Company Number: None

PATIENT
  Age: 58 Year
  Sex: Female
  Weight: 52.2 kg

DRUGS (7)
  1. VARUBI [Suspect]
     Active Substance: ROLAPITANT
     Indication: ANTIEMETIC SUPPORTIVE CARE
     Dosage: ?          OTHER FREQUENCY:WITH CHEMO;?
     Route: 041
     Dates: start: 20171219, end: 20171219
  2. TAXOTERE [Concomitant]
     Active Substance: DOCETAXEL
  3. NEULASTA [Concomitant]
     Active Substance: PEGFILGRASTIM
  4. PERJETA [Concomitant]
     Active Substance: PERTUZUMAB
  5. HERCEPTIN [Concomitant]
     Active Substance: TRASTUZUMAB
  6. CARBOPLATIN. [Concomitant]
     Active Substance: CARBOPLATIN
  7. ALOXI [Concomitant]
     Active Substance: PALONOSETRON HYDROCHLORIDE

REACTIONS (1)
  - Dizziness [None]

NARRATIVE: CASE EVENT DATE: 20171219
